FAERS Safety Report 9292243 (Version 2)
Quarter: 2013Q3

REPORT INFORMATION
  Report Type: Spontaneous
  Country: GB (occurrence: GB)
  Receive Date: 20130516
  Receipt Date: 20130827
  Transmission Date: 20140515
  Serious: Yes (Other)
  Sender: FDA-Public Use
  Company Number: GB-VERTEX PHARMACEUTICALS INC-2013-006065

PATIENT
  Age: 43 Year
  Sex: Female
  Weight: 72.1 kg

DRUGS (6)
  1. INCIVO [Suspect]
     Indication: HEPATITIS C
     Dosage: 750 MG, TID
     Route: 048
     Dates: start: 20130501, end: 20130508
  2. RIBAVIRIN [Concomitant]
     Indication: HEPATITIS C
     Dosage: UNK, BID
     Route: 065
     Dates: start: 20130501
  3. RIBAVIRIN [Concomitant]
     Dosage: DOSAGE FORM: UNSPECIFIED
     Route: 065
     Dates: start: 20130501
  4. GLICLAZIDE [Concomitant]
     Indication: DIABETES MELLITUS
     Dosage: UNK, BID
     Route: 065
  5. LANSOPRAZOLE [Concomitant]
     Indication: PRODUCT USED FOR UNKNOWN INDICATION
     Dosage: UNK, QD
     Route: 065
  6. INTERFERON [Concomitant]
     Indication: HEPATITIS C
     Dosage: UNK UNK, QW
     Route: 065
     Dates: start: 20130501

REACTIONS (1)
  - Rash pruritic [Recovered/Resolved]
